FAERS Safety Report 5209054-6 (Version None)
Quarter: 2007Q1

REPORT INFORMATION
  Report Type: 
  Country: None (occurrence: None)
  Receive Date: 20070116
  Receipt Date: 20070109
  Transmission Date: 20070707
  Serious: Yes (Death, Hospitalization)
  Sender: FDA-Public Use
  Company Number: PHRM2007FR00492

PATIENT
  Age: 91 Year
  Sex: Female

DRUGS (7)
  1. VOLTARENE LP [Suspect]
     Indication: RHEUMATOID ARTHRITIS
     Dosage: 75 MG, QD
     Route: 048
     Dates: end: 20061018
  2. PERINDOPRIL ERBUMINE [Suspect]
     Indication: ESSENTIAL HYPERTENSION
     Route: 048
     Dates: end: 20061018
  3. LASIX [Suspect]
     Dosage: 40 MG, QD
     Route: 048
     Dates: end: 20061018
  4. DEPAKENE [Concomitant]
     Indication: EPILEPSY
     Dosage: 500 MG, QD
     Route: 048
     Dates: start: 20040615, end: 20061029
  5. CORDARONE [Suspect]
     Indication: ATRIAL FIBRILLATION
     Dosage: 200 MG, QD
     Route: 048
     Dates: end: 20061018
  6. AMLOR [Concomitant]
     Indication: ESSENTIAL HYPERTENSION
     Dosage: 5 MG, QD
     Route: 048
     Dates: end: 20061018
  7. STABLON [Concomitant]
     Dosage: 12.5 MG, QD
     Route: 048
     Dates: end: 20061029

REACTIONS (18)
  - ASTHENIA [None]
  - BRAIN NATRIURETIC PEPTIDE INCREASED [None]
  - BRONCHITIS [None]
  - C-REACTIVE PROTEIN INCREASED [None]
  - CARDIAC FAILURE [None]
  - DECUBITUS ULCER [None]
  - DYSPNOEA [None]
  - ESCHERICHIA URINARY TRACT INFECTION [None]
  - FAILURE TO THRIVE [None]
  - GENERAL PHYSICAL HEALTH DETERIORATION [None]
  - HYPERKALAEMIA [None]
  - HYPOXIA [None]
  - OEDEMA PERIPHERAL [None]
  - PAIN [None]
  - PHYSIOTHERAPY CHEST [None]
  - PULMONARY CONGESTION [None]
  - RENAL FAILURE ACUTE [None]
  - WHITE BLOOD CELL COUNT INCREASED [None]
